FAERS Safety Report 5392247-5 (Version None)
Quarter: 2007Q3

REPORT INFORMATION
  Report Type: 
  Country: None (occurrence: None)
  Receive Date: 20070720
  Receipt Date: 20070717
  Transmission Date: 20080115
  Serious: Yes (Death, Life-Threatening)
  Sender: FDA-Public Use
  Company Number: JP-ELI_LILLY_AND_COMPANY-JP200705002563

PATIENT
  Age: 66 Year
  Sex: Male

DRUGS (4)
  1. GEMZAR [Suspect]
     Indication: PANCREATIC CARCINOMA STAGE IV
     Dosage: 1 G, OTHER
     Route: 042
     Dates: end: 20060528
  2. GEMZAR [Suspect]
     Dosage: 1 G, OTHER
     Route: 042
     Dates: start: 20051108
  3. FLUOROURACIL [Concomitant]
     Indication: PANCREATIC CARCINOMA STAGE IV
     Dosage: 1 G, OTHER
     Route: 042
     Dates: start: 20051108, end: 20070528
  4. THERAPEUTIC RADIOPHARMACEUTICALS [Concomitant]
     Indication: PANCREATIC CARCINOMA STAGE IV
     Dosage: 50 GY/25DAYS
     Dates: start: 20060314, end: 20060101

REACTIONS (5)
  - GASTRIC PERFORATION [None]
  - GASTRIC ULCER [None]
  - MALIGNANT NEOPLASM PROGRESSION [None]
  - RESPIRATORY FAILURE [None]
  - WHITE BLOOD CELL COUNT DECREASED [None]
